FAERS Safety Report 5375332-3 (Version None)
Quarter: 2007Q2

REPORT INFORMATION
  Report Type: 
  Country: None (occurrence: None)
  Receive Date: 20070629
  Receipt Date: 20070619
  Transmission Date: 20071010
  Serious: Yes (Life-Threatening, Hospitalization)
  Sender: FDA-Public Use
  Company Number: GB-PFIZER INC-2006060391

PATIENT
  Age: 34 Year

DRUGS (2)
  1. SULFASALAZINE [Suspect]
     Indication: ARTHRITIS REACTIVE
     Route: 048
     Dates: start: 20060227, end: 20060331
  2. DICLOFENAC [Concomitant]
     Route: 048
     Dates: start: 20051201, end: 20060411

REACTIONS (1)
  - DRUG RASH WITH EOSINOPHILIA AND SYSTEMIC SYMPTOMS [None]
